FAERS Safety Report 8844180 (Version 2)
Quarter: 2012Q4

REPORT INFORMATION
  Report Type: 
  Country: US (occurrence: US)
  Receive Date: 20121016
  Receipt Date: 20121022
  Transmission Date: 20130627
  Serious: Yes (Other)
  Sender: FDA-Public Use
  Company Number: US-PFIZER INC-2012254007

PATIENT
  Age: 59 Year
  Sex: Female
  Weight: 136 kg

DRUGS (3)
  1. CELEBREX [Suspect]
     Indication: ARTHRITIS
     Dosage: 500 mg, as needed
  2. CELEBREX [Suspect]
     Indication: CARPAL TUNNEL SYNDROME
     Dosage: 500 mg, daily
     Dates: end: 2012
  3. PROTONIX [Suspect]
     Indication: GASTRITIS
     Dosage: 50 mg, daily
     Dates: start: 201204

REACTIONS (5)
  - Gastritis atrophic [Recovering/Resolving]
  - Drug ineffective [Unknown]
  - Fall [Unknown]
  - Joint injury [Unknown]
  - Abdominal pain upper [Unknown]
